FAERS Safety Report 11719259 (Version 1)
Quarter: 2015Q4

REPORT INFORMATION
  Report Type: Spontaneous
  Country: US (occurrence: None)
  Receive Date: 20151109
  Receipt Date: 20151109
  Transmission Date: 20160304
  Serious: No
  Sender: FDA-Public Use
  Company Number: None

PATIENT
  Age: 28 Year
  Sex: Female
  Weight: 72.58 kg

DRUGS (6)
  1. MERCAPTOPUR [Concomitant]
  2. PRENATAL VITAMINS [Concomitant]
     Active Substance: VITAMINS
  3. FISH OIL [Concomitant]
     Active Substance: FISH OIL
  4. TYLENOL [Concomitant]
     Active Substance: ACETAMINOPHEN
  5. CITALOPRAM [Concomitant]
     Active Substance: CITALOPRAM HYDROBROMIDE
  6. REMICADE [Suspect]
     Active Substance: INFLIXIMAB
     Indication: CROHN^S DISEASE
     Dosage: EVERY 8 WEEKS INTO A VEIN

REACTIONS (2)
  - Rash erythematous [None]
  - Headache [None]
